FAERS Safety Report 18669677 (Version 2)
Quarter: 2025Q4

REPORT INFORMATION
  Report Type: Spontaneous
  Country: KR (occurrence: KR)
  Receive Date: 20201228
  Receipt Date: 20251208
  Transmission Date: 20260117
  Serious: Yes (Life-Threatening, Hospitalization, Other)
  Sender: ALKEM
  Company Number: None

PATIENT
  Age: 64 Year
  Sex: Female
  Weight: 52 kg

DRUGS (8)
  1. MYCOPHENOLATE MOFETIL [Suspect]
     Active Substance: MYCOPHENOLATE MOFETIL
     Indication: Pemphigus
     Dosage: 2 DOSAGE FORM, OD, (1 GRAM PER DAY)
     Route: 048
     Dates: start: 20180709, end: 20181010
  2. METHYLPREDNISOLONE [Suspect]
     Active Substance: METHYLPREDNISOLONE
     Indication: Pemphigus
     Dosage: 1 DOSAGE FORM, OD (TABLET) (20 MILLIGRAM PER DAY)
     Route: 048
     Dates: start: 20180627, end: 20180708
  3. METHYLPREDNISOLONE [Suspect]
     Active Substance: METHYLPREDNISOLONE
     Dosage: 1 DOSAGE FORM, OD
     Route: 048
     Dates: start: 20180709, end: 20181127
  4. METHYLPREDNISOLONE [Suspect]
     Active Substance: METHYLPREDNISOLONE
     Dosage: 1 DOSAGE FORM, OD, (2 MILLIGRAM PER DAY)
     Route: 048
     Dates: start: 20181128, end: 20190719
  5. RITUXIMAB [Suspect]
     Active Substance: RITUXIMAB
     Indication: Pemphigus
     Dosage: 2 DOSAGE FORM (2 PER WEEK) (TRUXIMA)
     Route: 042
     Dates: start: 20180725, end: 20180807
  6. RITUXIMAB [Suspect]
     Active Substance: RITUXIMAB
     Dosage: 2 DOSAGE FORM (2 PER WEEK), (TRUXIMA)
     Route: 042
     Dates: start: 20180808, end: 20180821
  7. SODIUM CHLORIDE [Concomitant]
     Active Substance: SODIUM CHLORIDE
     Indication: Pemphigus
     Dosage: 500 MILLILITER, (2 PER WEEK)
     Route: 042
     Dates: start: 20180725, end: 20180807
  8. SODIUM CHLORIDE [Concomitant]
     Active Substance: SODIUM CHLORIDE
     Dosage: 500 MILLILITER, (2 PER WEEK)
     Route: 042
     Dates: start: 20180808, end: 20180821

REACTIONS (1)
  - Hepatitis B reactivation [Recovered/Resolved]

NARRATIVE: CASE EVENT DATE: 20181129
